FAERS Safety Report 7071283-7 (Version None)
Quarter: 2010Q4

REPORT INFORMATION
  Report Type: 
  Country: None (occurrence: None)
  Receive Date: 20101028
  Receipt Date: 20101028
  Transmission Date: 20110411
  Serious: Yes (Death)
  Sender: FDA-Public Use
  Company Number: None

PATIENT
  Sex: Male

DRUGS (2)
  1. LEXAPRO [Suspect]
     Indication: ANXIETY
     Dosage: 20MG 1 DAILY P.O.
     Route: 048
     Dates: start: 20100922, end: 20101008
  2. LEXAPRO [Suspect]
     Indication: DEPRESSION
     Dosage: 20MG 1 DAILY P.O.
     Route: 048
     Dates: start: 20100922, end: 20101008

REACTIONS (2)
  - COMPLETED SUICIDE [None]
  - GUN SHOT WOUND [None]
